FAERS Safety Report 13584110 (Version 2)
Quarter: 2017Q2

REPORT INFORMATION
  Report Type: Spontaneous
  Country: US (occurrence: US)
  Receive Date: 20170526
  Receipt Date: 20170607
  Transmission Date: 20170830
  Serious: Yes (Other)
  Sender: FDA-Public Use
  Company Number: US-AUROBINDO-AUR-APL-2017-34398

PATIENT
  Sex: Male

DRUGS (1)
  1. MILK OF MAGNESIA [Suspect]
     Active Substance: MAGNESIUM HYDROXIDE
     Indication: CONSTIPATION
     Route: 065

REACTIONS (15)
  - Hypothermia [Recovering/Resolving]
  - Hypermagnesaemia [Recovering/Resolving]
  - Atrial fibrillation [Recovering/Resolving]
  - Vascular resistance systemic decreased [Recovering/Resolving]
  - Cardiac arrest [Recovering/Resolving]
  - Nausea [Recovering/Resolving]
  - Hypotension [Recovering/Resolving]
  - Respiratory distress [Recovering/Resolving]
  - Acute myocardial infarction [Recovering/Resolving]
  - Electrocardiogram QRS complex prolonged [Recovering/Resolving]
  - Cardiogenic shock [Recovering/Resolving]
  - Apnoea [Recovering/Resolving]
  - Vomiting [Recovering/Resolving]
  - Bradycardia [Recovering/Resolving]
  - Septic shock [Recovering/Resolving]
